FAERS Safety Report 7282648-2 (Version None)
Quarter: 2011Q1

REPORT INFORMATION
  Report Type: 
  Country: None (occurrence: None)
  Receive Date: 20110128
  Receipt Date: 20110120
  Transmission Date: 20110831
  Serious: Yes (Death)
  Sender: FDA-Public Use
  Company Number: 1000018336

PATIENT
  Age: 65 Year
  Sex: Male

DRUGS (8)
  1. DOXEPIN HCL [Suspect]
  2. ACETAMINOPHEN [Suspect]
  3. ALPRAZOLAM [Suspect]
  4. VENLAFAXINE [Suspect]
  5. WARFARIN (WARFARIN) [Suspect]
  6. PROPRANOLOL HYDROCHLORIDE [Suspect]
  7. LAMOTRIGINE [Suspect]
  8. MODAFINIL [Suspect]

REACTIONS (3)
  - CARDIO-RESPIRATORY ARREST [None]
  - COMPLETED SUICIDE [None]
  - MULTIPLE DRUG OVERDOSE INTENTIONAL [None]
